FAERS Safety Report 25423273 (Version 1)
Quarter: 2025Q2

REPORT INFORMATION
  Report Type: Spontaneous
  Country: US (occurrence: None)
  Receive Date: 20250611
  Receipt Date: 20250611
  Transmission Date: 20250716
  Serious: Yes (Hospitalization)
  Sender: FDA-CTU
  Company Number: None

PATIENT
  Age: 76 Year
  Sex: Male
  Weight: 93 kg

DRUGS (1)
  1. WARFARIN SODIUM [Suspect]
     Active Substance: WARFARIN SODIUM
     Indication: Atrial flutter

REACTIONS (5)
  - Anaemia [None]
  - Haemorrhage [None]
  - Fall [None]
  - Haematoma [None]
  - Rib fracture [None]

NARRATIVE: CASE EVENT DATE: 20250504
